FAERS Safety Report 9286275 (Version 2)
Quarter: 2013Q2

REPORT INFORMATION
  Report Type: Spontaneous
  Country: CA (occurrence: CA)
  Receive Date: 20130513
  Receipt Date: 20130513
  Transmission Date: 20140414
  Serious: Yes (Life-Threatening, Hospitalization, Other)
  Sender: FDA-Public Use
  Company Number: CA-009507513-1304CAN017037

PATIENT
  Age: 43 Year
  Sex: Female

DRUGS (1)
  1. LINESSA [Suspect]
     Indication: ENDOMETRIOSIS
     Dosage: UNK DF, QD
     Route: 048
     Dates: start: 201212

REACTIONS (5)
  - Deep vein thrombosis [Not Recovered/Not Resolved]
  - Thrombectomy [Recovered/Resolved]
  - Off label use [Unknown]
  - Hypopnoea [None]
  - Cardiac murmur [None]
